FAERS Safety Report 4842915-6 (Version None)
Quarter: 2005Q4

REPORT INFORMATION
  Report Type: 
  Country: None (occurrence: None)
  Receive Date: 20051201
  Receipt Date: 20051122
  Transmission Date: 20060501
  Serious: Yes (Death)
  Sender: FDA-Public Use
  Company Number: PHNU2005DE03840

PATIENT
  Sex: Female

DRUGS (2)
  1. AREDIA [Suspect]
  2. ARIMIDEX [Suspect]

REACTIONS (3)
  - AUTOIMMUNE HEPATITIS [None]
  - HEPATIC ENZYME INCREASED [None]
  - HEPATIC FAILURE [None]
